FAERS Safety Report 5794878-7 (Version None)
Quarter: 2008Q2

REPORT INFORMATION
  Report Type: 
  Country: None (occurrence: None)
  Receive Date: 20080627
  Receipt Date: 20080627
  Transmission Date: 20081010
  Serious: Yes (Other)
  Sender: FDA-Public Use
  Company Number: None

PATIENT
  Age: 65 Year
  Sex: Male
  Weight: 86 kg

DRUGS (2)
  1. VORICONAZOLE 200 MG PFIZER [Suspect]
     Indication: COCCIDIOIDOMYCOSIS
     Dosage: 200 MG Q12H PO
     Route: 048
     Dates: start: 20080602, end: 20080605
  2. VORICONAZOLE 100 MG PFIZER [Suspect]
     Indication: COCCIDIOIDOMYCOSIS
     Dosage: 350 MG Q12H IV
     Route: 042
     Dates: start: 20080605, end: 20080607

REACTIONS (2)
  - WHITE BLOOD CELL COUNT DECREASED [None]
  - WHITE BLOOD CELL COUNT INCREASED [None]
